FAERS Safety Report 6359344-9 (Version None)
Quarter: 2009Q3

REPORT INFORMATION
  Report Type: 
  Country: None (occurrence: None)
  Receive Date: 20090917
  Receipt Date: 20090910
  Transmission Date: 20100115
  Serious: Yes (Life-Threatening, Hospitalization)
  Sender: FDA-Public Use
  Company Number: PL-ELI_LILLY_AND_COMPANY-PL200909000477

PATIENT
  Sex: Male
  Weight: 75 kg

DRUGS (5)
  1. ALIMTA [Suspect]
     Indication: MESOTHELIOMA MALIGNANCY UNSPECIFIED
     Dosage: 1000 MG, UNK
     Route: 042
     Dates: start: 20090807
  2. ZOFRAN [Concomitant]
     Dosage: 8 MG, UNK
     Route: 042
     Dates: start: 20090807
  3. DEXAVEN [Concomitant]
     Dosage: 8 MG, UNK
     Route: 042
     Dates: start: 20090807
  4. FOLIC ACID [Concomitant]
     Dosage: UNK, UNK
  5. VITAMIN B-12 [Concomitant]

REACTIONS (5)
  - FEBRILE NEUTROPENIA [None]
  - HEPATIC ENZYME INCREASED [None]
  - NEUTROPENIA [None]
  - PLATELET COUNT DECREASED [None]
  - RASH [None]
